FAERS Safety Report 7209518-X (Version None)
Quarter: 2011Q1

REPORT INFORMATION
  Report Type: 
  Country: None (occurrence: None)
  Receive Date: 20110104
  Receipt Date: 20101227
  Transmission Date: 20110831
  Serious: Yes (Hospitalization, Other)
  Sender: FDA-Public Use
  Company Number: BR-ABBOTT-10P-020-0665153-00

PATIENT
  Sex: Male
  Weight: 65 kg

DRUGS (3)
  1. OMEPRAZOLE [Concomitant]
     Indication: GASTRIC DISORDER
     Route: 048
  2. HUMIRA [Suspect]
     Indication: CROHN'S DISEASE
     Dosage: INDUCTION DOSE: 160MG (15 DAYS)
     Route: 058
     Dates: start: 20100712
  3. AZATHIOPRINE [Concomitant]
     Indication: CROHN'S DISEASE
     Route: 048
     Dates: start: 20020101

REACTIONS (5)
  - PYREXIA [None]
  - COUGH [None]
  - CROHN'S DISEASE [None]
  - NODULE [None]
  - INCREASED BRONCHIAL SECRETION [None]
